FAERS Safety Report 25405062 (Version 2)
Quarter: 2025Q3

REPORT INFORMATION
  Report Type: Spontaneous
  Country: GB (occurrence: GB)
  Receive Date: 20250606
  Receipt Date: 20250926
  Transmission Date: 20251021
  Serious: Yes (Other)
  Sender: RANBAXY
  Company Number: GB-SUN PHARMACEUTICAL INDUSTRIES LTD-2025RR-509927

PATIENT
  Age: 59 Year
  Sex: Female
  Weight: 114 kg

DRUGS (10)
  1. ROSUVASTATIN [Suspect]
     Active Substance: ROSUVASTATIN
     Indication: Ill-defined disorder
     Route: 065
     Dates: start: 20240701
  2. FLUCONAZOLE [Concomitant]
     Active Substance: FLUCONAZOLE
     Indication: Ill-defined disorder
     Route: 065
     Dates: start: 20250324, end: 20250331
  3. FERROUS FUMARATE [Concomitant]
     Active Substance: FERROUS FUMARATE
     Indication: Ill-defined disorder
     Route: 065
     Dates: start: 20250407
  4. HUXD3 [Concomitant]
     Indication: Ill-defined disorder
     Route: 065
     Dates: start: 20250407
  5. OMEPRAZOLE [Concomitant]
     Active Substance: OMEPRAZOLE
     Indication: Ill-defined disorder
     Route: 065
     Dates: start: 20240106
  6. TRAMADOL [Concomitant]
     Active Substance: TRAMADOL
     Indication: Ill-defined disorder
     Route: 065
     Dates: start: 20240106
  7. METFORMIN [Concomitant]
     Active Substance: METFORMIN HYDROCHLORIDE
     Indication: Ill-defined disorder
     Route: 065
     Dates: start: 20240327
  8. EASYHALER [Concomitant]
     Indication: Ill-defined disorder
     Route: 065
     Dates: start: 20240701
  9. EMPAGLIFLOZIN [Concomitant]
     Active Substance: EMPAGLIFLOZIN
     Indication: Ill-defined disorder
     Route: 065
     Dates: start: 20240926
  10. MOUNJARO [Concomitant]
     Active Substance: TIRZEPATIDE
     Indication: Ill-defined disorder
     Route: 065
     Dates: start: 20240926

REACTIONS (1)
  - Headache [Recovered/Resolved]
